FAERS Safety Report 5910764-3 (Version None)
Quarter: 2008Q4

REPORT INFORMATION
  Report Type: 
  Country: None (occurrence: None)
  Receive Date: 20081007
  Receipt Date: 20080421
  Transmission Date: 20090506
  Serious: No
  Sender: FDA-Public Use
  Company Number: US-ASTRAZENECA-2008UW08092

PATIENT
  Age: 76 Year
  Sex: Female
  Weight: 67.6 kg

DRUGS (6)
  1. ARIMIDEX [Suspect]
     Indication: BREAST CANCER
     Route: 048
     Dates: start: 20070301
  2. NORVASC [Concomitant]
  3. ALENDRONIC ACID [Concomitant]
  4. CALCIUM [Concomitant]
  5. VITAMINS [Concomitant]
  6. HTZT [Concomitant]
     Route: 031

REACTIONS (2)
  - GINGIVAL DISORDER [None]
  - PAIN IN EXTREMITY [None]
